FAERS Safety Report 14657687 (Version 10)
Quarter: 2019Q1

REPORT INFORMATION
  Report Type: Report from Study
  Country: CA (occurrence: CA)
  Receive Date: 20180320
  Receipt Date: 20190322
  Transmission Date: 20190417
  Serious: Yes (Hospitalization, Other)
  Sender: FDA-Public Use
  Company Number: CA-BRISTOL-MYERS SQUIBB COMPANY-BMS-2017-095289

PATIENT
  Age: 60 Year
  Sex: Female

DRUGS (4)
  1. ABATACEPT [Suspect]
     Active Substance: ABATACEPT
     Indication: PRODUCT USED FOR UNKNOWN INDICATION
     Dosage: 500 MG, Q4WK
     Route: 042
  2. ABATACEPT [Suspect]
     Active Substance: ABATACEPT
     Indication: RHEUMATOID ARTHRITIS
     Dosage: 750 MG, Q4WK
     Route: 042
     Dates: start: 20110513
  3. ABATACEPT [Suspect]
     Active Substance: ABATACEPT
     Indication: PRODUCT USED FOR UNKNOWN INDICATION
     Dosage: 625 MILLIGRAM, Q4WK
     Route: 042
  4. CELECOXIB. [Suspect]
     Active Substance: CELECOXIB
     Indication: PRODUCT USED FOR UNKNOWN INDICATION
     Dosage: UNK
     Route: 065
     Dates: start: 201712

REACTIONS (23)
  - Gastrointestinal ulcer [Not Recovered/Not Resolved]
  - Arrhythmia [Unknown]
  - Feeling hot [Unknown]
  - Musculoskeletal pain [Unknown]
  - Abdominal pain [Recovered/Resolved]
  - Arthralgia [Unknown]
  - Burning sensation [Unknown]
  - Pain [Unknown]
  - Crohn^s disease [Unknown]
  - Blood pressure fluctuation [Unknown]
  - Nausea [Recovering/Resolving]
  - Flatulence [Recovering/Resolving]
  - Blood pressure increased [Unknown]
  - Headache [Recovering/Resolving]
  - Joint stiffness [Unknown]
  - Dyspepsia [Recovered/Resolved]
  - Off label use [Unknown]
  - Oedema peripheral [Unknown]
  - Back pain [Unknown]
  - Pain in extremity [Unknown]
  - Eructation [Unknown]
  - Erythema [Unknown]
  - Chills [Unknown]

NARRATIVE: CASE EVENT DATE: 201712
